FAERS Safety Report 9413316 (Version 1)
Quarter: 2020Q3

REPORT INFORMATION
  Report Type: Report from Study
  Country: PL (occurrence: PL)
  Receive Date: 20130722
  Receipt Date: 20130722
  Transmission Date: 20201104
  Serious: Yes (Life-Threatening, Hospitalization, Disabling)
  Sender: FDA-Public Use
  Company Number: PL-JNJFOC-20120810419

PATIENT
  Age: 53 Year
  Sex: Male
  Weight: 89 kg

DRUGS (2)
  1. USTEKINUMAB [Suspect]
     Active Substance: USTEKINUMAB
     Indication: PSORIATIC ARTHROPATHY
     Route: 058
     Dates: start: 20100721, end: 20120328
  2. USTEKINUMAB [Suspect]
     Active Substance: USTEKINUMAB
     Route: 058

REACTIONS (1)
  - Ischaemic stroke [Recovered/Resolved with Sequelae]

NARRATIVE: CASE EVENT DATE: 20120714
